FAERS Safety Report 16060597 (Version 2)
Quarter: 2019Q1

REPORT INFORMATION
  Report Type: Spontaneous
  Country: US (occurrence: US)
  Receive Date: 20190312
  Receipt Date: 20190316
  Transmission Date: 20190418
  Serious: No
  Sender: FDA-Public Use
  Company Number: US-LEO PHARMA-317234

PATIENT
  Sex: Female

DRUGS (1)
  1. PICATO [Suspect]
     Active Substance: INGENOL MEBUTATE
     Indication: PRECANCEROUS SKIN LESION
     Dosage: ONCE
     Route: 061
     Dates: start: 20190101, end: 20190101

REACTIONS (6)
  - Application site vesicles [Recovered/Resolved]
  - Incorrect product administration duration [Unknown]
  - Eye swelling [Recovered/Resolved]
  - Application site haemorrhage [Recovered/Resolved]
  - Application site scar [Not Recovered/Not Resolved]
  - Application site pain [Recovered/Resolved]
